FAERS Safety Report 10930433 (Version 1)
Quarter: 2015Q1

REPORT INFORMATION
  Report Type: Spontaneous
  Country: AU (occurrence: AU)
  Receive Date: 20150319
  Receipt Date: 20150319
  Transmission Date: 20150721
  Serious: Yes (Other)
  Sender: FDA-Public Use
  Company Number: AU-GLAXOSMITHKLINE INC.-AU2015GSK035706

PATIENT
  Age: 40 Year
  Sex: Male

DRUGS (4)
  1. FLUTICASONE PROPIONATE. [Suspect]
     Active Substance: FLUTICASONE PROPIONATE
     Indication: ASTHMA
     Dosage: 250 UG, BID IN THE PRECEDING 5 MONTHS
     Route: 055
  2. LOPINAVIR AND RITONAVIR [Interacting]
     Active Substance: LOPINAVIR\RITONAVIR
     Indication: HIV INFECTION
     Dosage: 400/100MG, BID
  3. STAVUDINE. [Suspect]
     Active Substance: STAVUDINE
     Indication: HIV INFECTION
     Dosage: UNK
  4. ABACAVIR [Suspect]
     Active Substance: ABACAVIR
     Indication: HIV INFECTION
     Dosage: UNK

REACTIONS (11)
  - Arthralgia [Unknown]
  - Joint swelling [Unknown]
  - Oedema [Unknown]
  - Osteonecrosis [Unknown]
  - Cushingoid [Unknown]
  - Joint effusion [Unknown]
  - Muscle atrophy [Unknown]
  - Drug interaction [Unknown]
  - Adrenal suppression [Unknown]
  - Osteopenia [Unknown]
  - Joint range of motion decreased [Unknown]
